FAERS Safety Report 4584240-7 (Version None)
Quarter: 2005Q1

REPORT INFORMATION
  Report Type: 
  Country: None (occurrence: None)
  Receive Date: 20050125
  Receipt Date: 20041027
  Transmission Date: 20050727
  Serious: No
  Sender: FDA-Public Use
  Company Number: USA041082490

PATIENT
  Age: 87 Year
  Sex: Male

DRUGS (1)
  1. FORTEO [Suspect]
     Indication: OSTEOPOROSIS
     Dates: start: 20041026

REACTIONS (5)
  - DIZZINESS [None]
  - FALL [None]
  - HAEMORRHAGE [None]
  - LACERATION [None]
  - LIMB INJURY [None]
